FAERS Safety Report 5515156-7 (Version None)
Quarter: 2007Q4

REPORT INFORMATION
  Report Type: 
  Country: None (occurrence: None)
  Receive Date: 20071113
  Receipt Date: 20070123
  Transmission Date: 20080405
  Serious: No
  Sender: FDA-Public Use
  Company Number: A0636700A

PATIENT
  Age: 66 Year
  Sex: Female

DRUGS (7)
  1. COREG [Suspect]
     Dosage: 3.125MG PER DAY
     Route: 048
     Dates: start: 20061201
  2. COZAAR [Concomitant]
  3. ZOCOR [Concomitant]
  4. ULTRACET [Concomitant]
  5. ARTHROTEC [Concomitant]
  6. ASPIRIN [Concomitant]
  7. MULTI-VITAMIN [Concomitant]

REACTIONS (4)
  - DIZZINESS [None]
  - DYSPNOEA [None]
  - FATIGUE [None]
  - HEART RATE IRREGULAR [None]
